FAERS Safety Report 7250828 (Version 2)
Quarter: 2013Q3

REPORT INFORMATION
  Report Type: Spontaneous
  Country: US (occurrence: None)
  Receive Date: 20091231
  Receipt Date: 20130708
  Transmission Date: 20140515
  Serious: Yes (Death, Other)
  Sender: FDA-Public Use
  Company Number: AUR-APL-2009-01465

PATIENT
  Age: 18 Year
  Sex: Male

DRUGS (7)
  1. CYCLOBENZAPRINE [Suspect]
     Indication: SUICIDE ATTEMPT
     Route: 048
  2. IBUPROFEN (IBUPROFEN) [Suspect]
     Indication: SUICIDE ATTEMPT
     Route: 048
  3. NAPROXEN (NAPROXEN) [Suspect]
     Indication: SUICIDE ATTEMPT
  4. ESCITALOPRAM (ESCITALOPRAM) [Suspect]
     Indication: SUICIDE ATTEMPT
     Route: 048
  5. PSEUDOEPHEDRINE [Suspect]
     Indication: SUICIDE ATTEMPT
     Route: 048
  6. ASPIRIN [Suspect]
     Indication: SUICIDE ATTEMPT
  7. ACETAMINOPHEN 325 MG//CODEINE 30 MG [Suspect]
     Indication: SUICIDE ATTEMPT
     Route: 048

REACTIONS (23)
  - Suicide attempt [None]
  - Intentional overdose [None]
  - Subarachnoid haemorrhage [None]
  - Hepatic function abnormal [None]
  - Respiratory failure [None]
  - Renal impairment [None]
  - Unresponsive to stimuli [None]
  - Apnoeic attack [None]
  - Thermometry abnormal [None]
  - Tachycardia [None]
  - Hypotension [None]
  - Blood pH decreased [None]
  - Hypotonia [None]
  - Pupillary disorder [None]
  - Urinary retention [None]
  - Toxicologic test abnormal [None]
  - Blood potassium increased [None]
  - International normalised ratio decreased [None]
  - Blood creatine phosphokinase increased [None]
  - Myoglobin blood increased [None]
  - Aspartate aminotransferase increased [None]
  - Alanine aminotransferase decreased [None]
  - Blood creatinine increased [None]
